FAERS Safety Report 11982902 (Version 1)
Quarter: 2016Q1

REPORT INFORMATION
  Report Type: Spontaneous
  Country: US (occurrence: None)
  Receive Date: 20160129
  Receipt Date: 20160129
  Transmission Date: 20160526
  Serious: Yes (Life-Threatening)
  Sender: FDA-Public Use
  Company Number: None

PATIENT
  Age: 55 Year
  Sex: Female
  Weight: 56.7 kg

DRUGS (11)
  1. PREMPRO [Concomitant]
     Active Substance: ESTROGENS, CONJUGATED\MEDROXYPROGESTERONE ACETATE
  2. FISH OIL [Concomitant]
     Active Substance: FISH OIL
  3. CALCIUM CITRATE [Concomitant]
     Active Substance: CALCIUM CITRATE
  4. DULOXETINE. [Suspect]
     Active Substance: DULOXETINE
     Indication: PAIN
     Dosage: 4 TO 5 YEARS
  5. MULTIVITAMINS [Concomitant]
     Active Substance: VITAMINS
  6. ADVIL [Concomitant]
     Active Substance: IBUPROFEN
  7. SOMA [Concomitant]
     Active Substance: CARISOPRODOL
  8. AMBIEN [Concomitant]
     Active Substance: ZOLPIDEM TARTRATE
  9. GABAPENTIN. [Concomitant]
     Active Substance: GABAPENTIN
  10. DULOXETINE. [Concomitant]
     Active Substance: DULOXETINE
  11. LEVOXYL [Concomitant]
     Active Substance: LEVOTHYROXINE SODIUM

REACTIONS (7)
  - Panic reaction [None]
  - Emotional distress [None]
  - Suicidal behaviour [None]
  - Abnormal dreams [None]
  - Body temperature fluctuation [None]
  - Intentional product use issue [None]
  - Drug withdrawal syndrome [None]

NARRATIVE: CASE EVENT DATE: 20160125
